FAERS Safety Report 4770587-8 (Version None)
Quarter: 2005Q3

REPORT INFORMATION
  Report Type: 
  Country: None (occurrence: None)
  Receive Date: 20050914
  Receipt Date: 20050901
  Transmission Date: 20060218
  Serious: Yes (Hospitalization)
  Sender: FDA-Public Use
  Company Number: 6017034

PATIENT
  Age: 67 Year
  Sex: Female

DRUGS (7)
  1. LEVOTHYROXINE SODIUM [Suspect]
     Dosage: 100 MCG (100 MCG, 1 IN 1 D) ORAL
     Route: 048
  2. MEMANTINE HCL [Suspect]
     Dosage: 20 MG (10 MG, 2 IN 1 D) ORAL
     Route: 048
  3. PLAVIX [Suspect]
     Dosage: 1 DOSAGE FORMS (1 DOSAGE FORMS, 1 IN 1 D) ORAL
     Route: 048
  4. HYDROCORTISONE [Suspect]
     Dosage: 10 MG (10 MG, 1 IN 1 D) ORAL
     Route: 048
  5. FOSAMAX [Suspect]
     Dosage: 10 MG (10 MG, 1 IN 1 D) ORAL
     Route: 048
     Dates: start: 20050426, end: 20050510
  6. AMLOR (5 MG, CAPSULE) (AMLODIPINE BESILATE) [Suspect]
     Dosage: 5 MG (5 MG, 1 IN D) ORAL
     Route: 048
  7. OROCAL D3 (COLECALCIFEROL, CALCIUM CARBONATE) [Concomitant]

REACTIONS (7)
  - INFLAMMATION [None]
  - ORAL PAIN [None]
  - OSTEOLYSIS [None]
  - OSTEONECROSIS [None]
  - PHARYNGOLARYNGEAL PAIN [None]
  - PURULENT DISCHARGE [None]
  - PYREXIA [None]
